FAERS Safety Report 4433877-4 (Version None)
Quarter: 2004Q3

REPORT INFORMATION
  Report Type: 
  Country: None (occurrence: None)
  Receive Date: 20040824
  Receipt Date: 20040824
  Transmission Date: 20050211
  Serious: Yes (Other)
  Sender: FDA-Public Use
  Company Number: None

PATIENT
  Age: 32 Year
  Sex: Male
  Weight: 110.6777 kg

DRUGS (1)
  1. REGLAN [Suspect]
     Indication: HIATUS HERNIA
     Dosage: 4X DAY ORAL
     Route: 048
     Dates: start: 20040617, end: 20040814

REACTIONS (3)
  - MUSCLE SPASMS [None]
  - MUSCLE TWITCHING [None]
  - NERVOUS SYSTEM DISORDER [None]
